FAERS Safety Report 6018982-3 (Version None)
Quarter: 2008Q4

REPORT INFORMATION
  Report Type: 
  Country: None (occurrence: None)
  Receive Date: 20081224
  Receipt Date: 20081215
  Transmission Date: 20090506
  Serious: Yes (Hospitalization, Other)
  Sender: FDA-Public Use
  Company Number: PL-PFIZER INC-2008101052

PATIENT

DRUGS (5)
  1. SUNITINIB MALATE [Suspect]
     Indication: BREAST CANCER
     Dosage: 37.5 MG, 1X/DAY
     Route: 048
     Dates: start: 20080923, end: 20081126
  2. *CAPECITABINE [Suspect]
     Indication: BREAST CANCER
     Dosage: 1650 MG, 2X/DAY, DAY 1-14, EVERY 3 WEEKS
     Route: 048
     Dates: start: 20080923, end: 20081120
  3. OMEPRAZOLE [Concomitant]
     Indication: PROPHYLAXIS AGAINST GASTROINTESTINAL ULCER
     Dosage: 10 MG, 1X/DAY
     Dates: start: 20080923
  4. SULFASALAZINE [Concomitant]
     Indication: PROPHYLAXIS
     Dosage: 2 G, 2X/DAY
     Dates: start: 20080923, end: 20081126
  5. PREDUCTAL [Concomitant]
     Indication: CARDIOVASCULAR EVENT PROPHYLAXIS
     Dosage: UNK
     Dates: start: 20080501

REACTIONS (1)
  - VENTRICULAR EXTRASYSTOLES [None]
